FAERS Safety Report 14680881 (Version 5)
Quarter: 2018Q3

REPORT INFORMATION
  Report Type: Spontaneous
  Country: RO (occurrence: RO)
  Receive Date: 20180326
  Receipt Date: 20180828
  Transmission Date: 20181010
  Serious: Yes (Hospitalization, Other)
  Sender: FDA-Public Use
  Company Number: RO-SA-2018SA060867

PATIENT
  Age: 49 Year
  Sex: Female

DRUGS (13)
  1. PREDNISONE. [Suspect]
     Active Substance: PREDNISONE
     Indication: UVEITIS
  2. METHYLPREDNISOLONE. [Suspect]
     Active Substance: METHYLPREDNISOLONE
     Dosage: DECREASED DOSE
     Route: 048
  3. METHYLPREDNISOLONE. [Suspect]
     Active Substance: METHYLPREDNISOLONE
     Dosage: LOW DOSE
     Route: 048
  4. DEXAMETHASONE SALT NOT SPECIFIED [Suspect]
     Active Substance: DEXAMETHASONE
     Indication: PRODUCT USED FOR UNKNOWN INDICATION
     Dosage: INJECTION
     Route: 031
     Dates: start: 2016
  5. METHYLPREDNISOLONE. [Suspect]
     Active Substance: METHYLPREDNISOLONE
     Indication: RETINAL EXUDATES
     Dosage: 1 G,BID (DIVIDED IN TWO DOSES)
     Route: 042
  6. PREDNISONE. [Suspect]
     Active Substance: PREDNISONE
     Indication: CHOROIDITIS
     Dosage: LOW DOSE
     Route: 065
  7. BEVACIZUMAB. [Concomitant]
     Active Substance: BEVACIZUMAB
     Indication: ADRENOCORTICAL STEROID THERAPY
     Dosage: INTRAVITREAL, SYSTEMIC AND TOPIC
     Dates: start: 2015, end: 2016
  8. METHOTREXATE. [Concomitant]
     Active Substance: METHOTREXATE
     Indication: UVEITIS
     Dosage: 12.5 MG,QW
     Route: 065
     Dates: start: 201605
  9. TRIAMCINOLONE [Concomitant]
     Active Substance: TRIAMCINOLONE
     Dosage: INTRAVITREAL, SYSTEMIC AND TOPIC
     Dates: start: 2015, end: 2016
  10. ARIPIPRAZOLE. [Concomitant]
     Active Substance: ARIPIPRAZOLE
     Indication: SCHIZOPHRENIA
     Dosage: UNK UNK,UNK
     Route: 065
  11. METHOTREXATE. [Concomitant]
     Active Substance: METHOTREXATE
     Indication: CHOROIDITIS
  12. VANCOMYCIN [Concomitant]
     Active Substance: VANCOMYCIN
     Indication: PRODUCT USED FOR UNKNOWN INDICATION
     Dosage: INJECTION
     Route: 031
  13. METHYLPREDNISOLONE. [Suspect]
     Active Substance: METHYLPREDNISOLONE
     Indication: VISUAL ACUITY REDUCED
     Dosage: 32 G,QD DECREASING GRADUALLY
     Route: 048

REACTIONS (1)
  - Cushing^s syndrome [Unknown]
